FAERS Safety Report 25439193 (Version 1)
Quarter: 2025Q2

REPORT INFORMATION
  Report Type: Spontaneous
  Country: US (occurrence: None)
  Receive Date: 20250612
  Receipt Date: 20250612
  Transmission Date: 20250716
  Serious: No
  Sender: FDA-CTU
  Company Number: None

PATIENT
  Sex: Female
  Weight: 81 kg

DRUGS (15)
  1. XIIDRA [Suspect]
     Active Substance: LIFITEGRAST
     Indication: Dry eye
     Dosage: OTHER QUANTITY : 1 DROP(S);?FREQUENCY : TWICE A DAY;?
     Route: 047
  2. FELODIPINE [Concomitant]
     Active Substance: FELODIPINE
  3. TRIAMTERENE [Concomitant]
     Active Substance: TRIAMTERENE
  4. TRAMADOL [Concomitant]
     Active Substance: TRAMADOL
  5. SIMVASTATIN [Concomitant]
     Active Substance: SIMVASTATIN
  6. ANASTROZOLE [Concomitant]
     Active Substance: ANASTROZOLE
  7. CYCLOBENZAPRINE [Concomitant]
     Active Substance: CYCLOBENZAPRINE
  8. KLOR-CON [Concomitant]
     Active Substance: POTASSIUM CHLORIDE
  9. ASPIRIN [Concomitant]
     Active Substance: ASPIRIN
  10. IBUPROFEN [Concomitant]
     Active Substance: IBUPROFEN
  11. COLACE [Concomitant]
     Active Substance: DOCUSATE SODIUM
  12. BENADRYL [Concomitant]
     Active Substance: DIPHENHYDRAMINE HYDROCHLORIDE
  13. AREDS2 [Concomitant]
  14. VITAMIN D3 [Concomitant]
     Active Substance: CHOLECALCIFEROL
  15. CASEIN\DIETARY SUPPLEMENT\THEANINE [Concomitant]
     Active Substance: CASEIN\DIETARY SUPPLEMENT\THEANINE

REACTIONS (5)
  - Drug ineffective [None]
  - Instillation site irritation [None]
  - Blindness transient [None]
  - Drug interaction [None]
  - Eye irritation [None]
